FAERS Safety Report 10003756 (Version 1)
Quarter: 2014Q1

REPORT INFORMATION
  Report Type: Spontaneous
  Country: US (occurrence: US)
  Receive Date: 20140312
  Receipt Date: 20140312
  Transmission Date: 20141002
  Serious: No
  Sender: FDA-Public Use
  Company Number: US-ABBVIE-13P-163-1070735-00

PATIENT
  Age: 43 Year
  Sex: Female
  Weight: 80.81 kg

DRUGS (27)
  1. DEPAKOTE [Suspect]
     Indication: AGORAPHOBIA
  2. LITHIUM [Suspect]
     Indication: AGORAPHOBIA
  3. LEXAPRO FILM-COATED TABLETS [Suspect]
     Indication: AGORAPHOBIA
  4. LUVOX [Suspect]
     Indication: AGORAPHOBIA
  5. PRISTIQ [Suspect]
     Indication: AGORAPHOBIA
     Route: 048
  6. PRISTIQ [Suspect]
     Indication: DEPRESSION
     Route: 048
  7. PRISTIQ [Suspect]
     Dates: start: 20130111
  8. PRISTIQ [Suspect]
     Dosage: 100MG IN MORNING, 50 MG IN THE AFTERNOON, 100 MG AT NIGHT
  9. ZOLOFT [Suspect]
     Indication: AGORAPHOBIA
  10. PROZAC [Suspect]
     Indication: AGORAPHOBIA
  11. LAMICTAL [Suspect]
     Indication: AGORAPHOBIA
  12. PAXIL [Suspect]
     Indication: AGORAPHOBIA
  13. VALIUM [Suspect]
     Indication: AGORAPHOBIA
  14. KLONOPIN [Suspect]
     Indication: AGORAPHOBIA
  15. TOPAMAX [Suspect]
     Indication: AGORAPHOBIA
  16. ABILIFY [Suspect]
     Indication: AGORAPHOBIA
     Dosage: 10 MG DAILY
  17. WELLBUTRIN [Suspect]
     Indication: AGORAPHOBIA
  18. CELEXA [Suspect]
     Indication: AGORAPHOBIA
  19. CYMBALTA [Suspect]
     Indication: AGORAPHOBIA
  20. ANAFRANIL [Suspect]
     Indication: AGORAPHOBIA
  21. IMIPRAMINE [Suspect]
     Indication: AGORAPHOBIA
  22. TEGRETOL [Suspect]
     Indication: AGORAPHOBIA
  23. SEROQUEL [Suspect]
     Indication: AGORAPHOBIA
  24. SEROQUEL XR [Concomitant]
     Indication: PRODUCT USED FOR UNKNOWN INDICATION
     Dosage: 250MG DAILY
  25. XANAX [Concomitant]
     Indication: PRODUCT USED FOR UNKNOWN INDICATION
  26. ADDERALL [Concomitant]
     Indication: PRODUCT USED FOR UNKNOWN INDICATION
  27. UNSPECIFIED MEDICATION [Concomitant]
     Indication: PRODUCT USED FOR UNKNOWN INDICATION

REACTIONS (4)
  - Activities of daily living impaired [Unknown]
  - Crying [Unknown]
  - Drug ineffective [Unknown]
  - Depression [Unknown]
